FAERS Safety Report 23882791 (Version 1)
Quarter: 2024Q2

REPORT INFORMATION
  Report Type: Spontaneous
  Country: US (occurrence: US)
  Receive Date: 20240522
  Receipt Date: 20240522
  Transmission Date: 20240716
  Serious: Yes (Hospitalization)
  Sender: FDA-Public Use
  Company Number: US-AUROBINDO-AUR-APL-2024-023966

PATIENT
  Sex: Male

DRUGS (1)
  1. CEPHALEXIN [Suspect]
     Active Substance: CEPHALEXIN
     Indication: Antibiotic prophylaxis
     Dosage: UNK
     Route: 065

REACTIONS (8)
  - Hospitalisation [Unknown]
  - Disease progression [Recovered/Resolved]
  - Vomiting [Recovered/Resolved]
  - Chromaturia [Recovered/Resolved]
  - Ocular icterus [Recovered/Resolved]
  - Jaundice [Recovered/Resolved]
  - Aspartate aminotransferase increased [Recovered/Resolved]
  - Adverse reaction [Unknown]
